FAERS Safety Report 17161881 (Version 1)
Quarter: 2019Q4

REPORT INFORMATION
  Report Type: Spontaneous
  Country: US (occurrence: US)
  Receive Date: 20191217
  Receipt Date: 20191217
  Transmission Date: 20200122
  Serious: Yes (Congenital Anomaly, Other)
  Sender: FDA-Public Use
  Company Number: US-TEVA-644586USA

PATIENT

DRUGS (3)
  1. ABATACEPT [Suspect]
     Active Substance: ABATACEPT
     Route: 064
  2. MYCOPHENOLATE SODIUM [Suspect]
     Active Substance: MYCOPHENOLATE SODIUM
     Route: 064
  3. MYCOPHENOLATE MOFETIL. [Suspect]
     Active Substance: MYCOPHENOLATE MOFETIL
     Route: 064

REACTIONS (2)
  - Meningocele [Unknown]
  - Foetal exposure during pregnancy [Unknown]
